FAERS Safety Report 15819359 (Version 1)
Quarter: 2019Q1

REPORT INFORMATION
  Report Type: Spontaneous
  Country: US (occurrence: US)
  Receive Date: 20190114
  Receipt Date: 20190114
  Transmission Date: 20190417
  Serious: No
  Sender: FDA-Public Use
  Company Number: US-JNJFOC-20181219531

PATIENT
  Age: 12 Year
  Sex: Female
  Weight: 45.5 kg

DRUGS (3)
  1. DOXIL [Suspect]
     Active Substance: DOXORUBICIN HYDROCHLORIDE
     Indication: METASTASES TO LIVER
     Dosage: 42 (UNSPECIFIED), DILUTED 250 ML; RATE AS LESS THEN 1 MG PER MINUTE
     Route: 042
     Dates: start: 20181213
  2. DOXIL [Suspect]
     Active Substance: DOXORUBICIN HYDROCHLORIDE
     Indication: NEOPLASM MALIGNANT
     Dosage: 42 (UNSPECIFIED), DILUTED 250 ML; RATE AS LESS THEN 1 MG PER MINUTE
     Route: 042
     Dates: start: 20181213
  3. BACTRIM [Concomitant]
     Active Substance: SULFAMETHOXAZOLE\TRIMETHOPRIM
     Dosage: 80 MG/ 400 MG
     Route: 065

REACTIONS (10)
  - Feeling hot [Unknown]
  - Feeling abnormal [Unknown]
  - Hypertension [Unknown]
  - Erythema [Unknown]
  - Abdominal pain [Unknown]
  - Anxiety [Unknown]
  - Off label use [Unknown]
  - Dyspnoea [Unknown]
  - Infusion related reaction [Unknown]
  - Product use in unapproved indication [Unknown]

NARRATIVE: CASE EVENT DATE: 20181213
